FAERS Safety Report 25735094 (Version 1)
Quarter: 2025Q3

REPORT INFORMATION
  Report Type: Spontaneous
  Country: US (occurrence: None)
  Receive Date: 20250827
  Receipt Date: 20250827
  Transmission Date: 20251020
  Serious: Yes (Hospitalization, Other)
  Sender: FDA-CTU
  Company Number: None

PATIENT
  Age: 39 Year
  Sex: Male
  Weight: 66 kg

DRUGS (1)
  1. DEFENCATH [Suspect]
     Active Substance: HEPARIN\TAUROLIDINE
     Indication: End stage renal disease
     Route: 050
     Dates: start: 20250822, end: 20250822

REACTIONS (4)
  - Dialysis [None]
  - Seizure [None]
  - Infusion related reaction [None]
  - Drug hypersensitivity [None]

NARRATIVE: CASE EVENT DATE: 20250822
